FAERS Safety Report 24326998 (Version 1)
Quarter: 2024Q3

REPORT INFORMATION
  Report Type: Spontaneous
  Country: JP (occurrence: JP)
  Receive Date: 20240917
  Receipt Date: 20240917
  Transmission Date: 20241016
  Serious: Yes (Death, Hospitalization)
  Sender: STRIDES
  Company Number: JP-STRIDES ARCOLAB LIMITED-2024SP011714

PATIENT
  Age: 70 Year
  Sex: Female

DRUGS (3)
  1. METHOTREXATE [Suspect]
     Active Substance: METHOTREXATE
     Indication: Rheumatoid arthritis
     Dosage: 8 MILLIGRAM, ONCE A WEEK
     Route: 065
  2. METHYLPREDNISOLONE [Suspect]
     Active Substance: METHYLPREDNISOLONE
     Indication: Diffuse large B-cell lymphoma
     Dosage: 1 GRAM, QD
     Route: 065
  3. SULFASALAZINE [Concomitant]
     Active Substance: SULFASALAZINE
     Indication: Rheumatoid arthritis
     Dosage: 1 GRAM, QD
     Route: 065

REACTIONS (2)
  - Diffuse large B-cell lymphoma [Fatal]
  - Pneumonia [Fatal]
